FAERS Safety Report 15943666 (Version 1)
Quarter: 2019Q1

REPORT INFORMATION
  Report Type: Spontaneous
  Country: US (occurrence: US)
  Receive Date: 20190210
  Receipt Date: 20190210
  Transmission Date: 20190417
  Serious: Yes (Death, Hospitalization)
  Sender: FDA-Public Use
  Company Number: PHEH2019US005828

PATIENT
  Age: 89 Year
  Sex: Male

DRUGS (2)
  1. ENTRESTO [Suspect]
     Active Substance: SACUBITRIL\VALSARTAN
     Indication: PRODUCT USED FOR UNKNOWN INDICATION
     Dosage: UNK
     Route: 065
  2. ENTRESTO [Suspect]
     Active Substance: SACUBITRIL\VALSARTAN
     Dosage: (HALF DOSE OF INITIAL DOSE PER DAY)
     Route: 065

REACTIONS (6)
  - Carbon dioxide abnormal [Fatal]
  - Pulmonary congestion [Fatal]
  - Respiratory failure [Fatal]
  - Fluid retention [Unknown]
  - Cardiac dysfunction [Fatal]
  - Renal failure [Unknown]
